FAERS Safety Report 8190502-7 (Version None)
Quarter: 2012Q1

REPORT INFORMATION
  Report Type: 
  Country: None (occurrence: None)
  Receive Date: 20120307
  Receipt Date: 20120229
  Transmission Date: 20120608
  Serious: Yes (Hospitalization, Other)
  Sender: FDA-Public Use
  Company Number: US-AMGEN-USASP2012011738

PATIENT
  Age: 33 Year
  Sex: Male
  Weight: 133 kg

DRUGS (26)
  1. EPOGEN [Suspect]
     Dosage: 8000 IU, 3 TIMES/WK
     Route: 058
     Dates: start: 20090810, end: 20090909
  2. VANCOMYCIN [Concomitant]
     Indication: STAPHYLOCOCCAL INFECTION
     Dosage: UNK G, UNK
     Route: 042
     Dates: start: 20120203, end: 20120216
  3. METOPROLOL SUCCINATE [Concomitant]
     Dosage: 50 MG, BID
     Route: 048
     Dates: start: 20090918
  4. HEPARIN [Concomitant]
     Dosage: UNK
     Route: 042
     Dates: start: 20090630, end: 20120121
  5. EPOGEN [Suspect]
     Dosage: 5000 IU, QWK
     Route: 058
     Dates: start: 20090630, end: 20090702
  6. VENOFER [Concomitant]
     Dosage: 100 MG, UNK
     Route: 042
     Dates: start: 20110407, end: 20111008
  7. LISINOPRIL [Concomitant]
     Dosage: 40 MG, QD
     Route: 048
  8. QVAR 40 [Concomitant]
     Dosage: UNK UNK, QD
  9. EPOGEN [Suspect]
     Dosage: 20000 IU, 3 TIMES/WK
     Route: 058
     Dates: start: 20120126, end: 20120222
  10. EPOGEN [Suspect]
     Dosage: 12000 IU, QWK
     Dates: start: 20111212, end: 20111212
  11. PROAIR HFA [Concomitant]
     Dosage: UNK, PRN
  12. EPOGEN [Suspect]
     Indication: NEPHROGENIC ANAEMIA
     Dosage: 20000 IU, 2 TIMES/WK
     Route: 058
     Dates: start: 20120223
  13. CEFTAZIDIME [Concomitant]
     Indication: PSEUDOMONAS INFECTION
     Dosage: UNK, QID
     Dates: start: 20120108, end: 20120121
  14. EPOGEN [Suspect]
     Dosage: 6000 IU, QWK
     Route: 058
     Dates: start: 20110927, end: 20111202
  15. VANCOMYCIN [Concomitant]
     Dosage: 1 G, UNK
     Route: 042
     Dates: start: 20111128, end: 20111128
  16. EPOGEN [Suspect]
     Dosage: 10000 IU, QWK
     Route: 058
     Dates: start: 20111203, end: 20111211
  17. CEFTRIAXONE [Concomitant]
     Dosage: 1 G, UNK
     Route: 042
     Dates: start: 20111128, end: 20111128
  18. HEPARIN [Concomitant]
     Dosage: 80 MG, UNK
     Route: 042
     Dates: start: 20120203, end: 20120204
  19. RENVELA [Concomitant]
     Dosage: 500 MG, UNK
     Dates: start: 20100630
  20. EPOGEN [Suspect]
     Dosage: 10000 IU, 3 TIMES/WK
     Route: 058
     Dates: start: 20120104, end: 20120120
  21. EPOGEN [Suspect]
     Dosage: 10000 IU, 3 TIMES/WK
     Route: 058
     Dates: start: 20090708, end: 20090810
  22. VANCOMYCIN [Concomitant]
     Indication: PSEUDOMONAS INFECTION
     Dosage: UNK
     Route: 042
     Dates: start: 20111231, end: 20120110
  23. CEFTAZIDIME [Concomitant]
     Indication: STAPHYLOCOCCAL INFECTION
     Dosage: 1 G, UNK
     Route: 042
     Dates: start: 20111231, end: 20120120
  24. EPOGEN [Suspect]
     Dosage: 15000 IU, 3 TIMES/WK
     Route: 058
     Dates: start: 20120121, end: 20120125
  25. EPOGEN [Suspect]
     Dosage: UNK
     Route: 058
     Dates: start: 20100101, end: 20110926
  26. EPOGEN [Suspect]
     Dosage: 10000 IU, 2 TIMES/WK
     Route: 058
     Dates: start: 20090702, end: 20090708

REACTIONS (3)
  - HAEMOGLOBIN DECREASED [None]
  - STAPHYLOCOCCAL INFECTION [None]
  - THERAPEUTIC RESPONSE DECREASED [None]
